FAERS Safety Report 19314059 (Version 1)
Quarter: 2021Q2

REPORT INFORMATION
  Report Type: Spontaneous
  Country: US (occurrence: US)
  Receive Date: 20210527
  Receipt Date: 20210527
  Transmission Date: 20210717
  Serious: Yes (Hospitalization)
  Sender: FDA-Public Use
  Company Number: None

PATIENT
  Age: 55 Year
  Sex: Female

DRUGS (17)
  1. SEROQUEL [Concomitant]
     Active Substance: QUETIAPINE FUMARATE
  2. ONDANSETRON [Concomitant]
     Active Substance: ONDANSETRON
  3. CITALOPRAM [Concomitant]
     Active Substance: CITALOPRAM HYDROBROMIDE
  4. POTASSIUM CHLORIDE. [Concomitant]
     Active Substance: POTASSIUM CHLORIDE
  5. TOPIRAMATE. [Concomitant]
     Active Substance: TOPIRAMATE
  6. CLOTRIM/BETA [Concomitant]
  7. DIMETHYL FUMARATE [Suspect]
     Active Substance: DIMETHYL FUMARATE
     Indication: MULTIPLE SCLEROSIS
     Route: 048
     Dates: start: 20201119
  8. OXYBUTYNIN. [Concomitant]
     Active Substance: OXYBUTYNIN CHLORIDE
  9. LITHIUM. [Concomitant]
     Active Substance: LITHIUM
  10. TORSEMIDE. [Concomitant]
     Active Substance: TORSEMIDE
  11. NYSTOP [Concomitant]
     Active Substance: NYSTATIN
  12. RANITIDINE. [Concomitant]
     Active Substance: RANITIDINE
  13. HYDROMORPHON [Concomitant]
     Active Substance: HYDROMORPHONE
  14. METOPROLOL. [Concomitant]
     Active Substance: METOPROLOL
  15. FENTANYL. [Concomitant]
     Active Substance: FENTANYL
  16. GABAPENTIN. [Concomitant]
     Active Substance: GABAPENTIN
  17. DIAZEPAM. [Concomitant]
     Active Substance: DIAZEPAM

REACTIONS (2)
  - Cardiac failure congestive [None]
  - Vaccination complication [None]

NARRATIVE: CASE EVENT DATE: 20210525
